FAERS Safety Report 8236753-4 (Version None)
Quarter: 2012Q1

REPORT INFORMATION
  Report Type: 
  Country: None (occurrence: None)
  Receive Date: 20120326
  Receipt Date: 20120326
  Transmission Date: 20120608
  Serious: Yes (Other)
  Sender: FDA-Public Use
  Company Number: None

PATIENT
  Age: 58 Year
  Sex: Female
  Weight: 63.5036 kg

DRUGS (1)
  1. TRANSDERM SCOP [Suspect]
     Route: 062

REACTIONS (4)
  - SKIN IRRITATION [None]
  - HALLUCINATION [None]
  - CONFUSIONAL STATE [None]
  - HYPERHIDROSIS [None]
